FAERS Safety Report 6167001-7 (Version None)
Quarter: 2009Q2

REPORT INFORMATION
  Report Type: 
  Country: None (occurrence: None)
  Receive Date: 20090424
  Receipt Date: 20090416
  Transmission Date: 20091009
  Serious: Yes (Life-Threatening, Hospitalization, Disabling, Other)
  Sender: FDA-Public Use
  Company Number: RO-ABBOTT-09P-135-0567966-00

PATIENT
  Sex: Female
  Weight: 85 kg

DRUGS (6)
  1. REDUCTIL [Suspect]
     Indication: OBESITY
     Route: 048
  2. DIURETICS [Suspect]
     Indication: DRUG USE FOR UNKNOWN INDICATION
     Dosage: OF THE PATIENT'S OWN INITIATIVE
     Route: 065
  3. ANTICOAGULANT [Concomitant]
     Indication: DRUG USE FOR UNKNOWN INDICATION
  4. LAXATIVE TEA [Concomitant]
     Indication: DRUG USE FOR UNKNOWN INDICATION
  5. CONTRACEPTIVE [Concomitant]
     Indication: DRUG USE FOR UNKNOWN INDICATION
  6. FUROSEMID [Concomitant]
     Indication: DRUG USE FOR UNKNOWN INDICATION
     Dosage: OF THE PATIENT'S OWN INITIATIVE

REACTIONS (10)
  - ARRHYTHMIA [None]
  - BLOOD CALCIUM ABNORMAL [None]
  - BLOOD POTASSIUM ABNORMAL [None]
  - CARDIO-RESPIRATORY ARREST [None]
  - COMA [None]
  - CONVULSION [None]
  - DEPRESSION [None]
  - ELECTROLYTE IMBALANCE [None]
  - LOSS OF CONSCIOUSNESS [None]
  - MUSCLE SPASMS [None]
